FAERS Safety Report 14274910 (Version 1)
Quarter: 2017Q4

REPORT INFORMATION
  Report Type: Spontaneous
  Country: US (occurrence: US)
  Receive Date: 20171212
  Receipt Date: 20171212
  Transmission Date: 20180321
  Serious: Yes (Hospitalization, Other)
  Sender: FDA-Public Use
  Company Number: US-GLAXOSMITHKLINE-US2017187345

PATIENT
  Sex: Female

DRUGS (1)
  1. BENLYSTA [Suspect]
     Active Substance: BELIMUMAB
     Indication: SYSTEMIC LUPUS ERYTHEMATOSUS

REACTIONS (7)
  - Blindness [Recovered/Resolved]
  - Posterior reversible encephalopathy syndrome [Unknown]
  - Incorrect drug administration rate [Unknown]
  - Seizure [Unknown]
  - Wrong technique in product usage process [Unknown]
  - Loss of consciousness [Recovered/Resolved]
  - Psoriasis [Unknown]
